FAERS Safety Report 12724176 (Version 1)
Quarter: 2016Q3

REPORT INFORMATION
  Report Type: Spontaneous
  Country: CA (occurrence: US)
  Receive Date: 20160903
  Receipt Date: 20160903
  Transmission Date: 20161109
  Serious: Yes (Hospitalization)
  Sender: FDA-Public Use
  Company Number: None

PATIENT
  Age: 58 Year
  Sex: Female
  Weight: 59.1 kg

DRUGS (2)
  1. MEMANTINE HYDROCHLORIDE. [Suspect]
     Active Substance: MEMANTINE HYDROCHLORIDE
     Dates: end: 20160821
  2. DEXAMETHASONE. [Suspect]
     Active Substance: DEXAMETHASONE

REACTIONS (4)
  - Muscular weakness [None]
  - Discomfort [None]
  - Back pain [None]
  - Mobility decreased [None]

NARRATIVE: CASE EVENT DATE: 20160822
